FAERS Safety Report 15545955 (Version 1)
Quarter: 2018Q4

REPORT INFORMATION
  Report Type: Spontaneous
  Country: US (occurrence: US)
  Receive Date: 20181024
  Receipt Date: 20181024
  Transmission Date: 20190205
  Serious: Yes (Disabling, Other)
  Sender: FDA-Public Use
  Company Number: US-HORIZON-PEN-1150-2018

PATIENT
  Age: 64 Year
  Sex: Male

DRUGS (2)
  1. PENNSAID [Suspect]
     Active Substance: DICLOFENAC SODIUM
     Indication: ARTHRITIS
     Dosage: ONCE A DAY BEFORE WORK
  2. BRILINTA [Concomitant]
     Active Substance: TICAGRELOR

REACTIONS (6)
  - Off label use [Unknown]
  - Dysstasia [Unknown]
  - Arthritis [Unknown]
  - Drug ineffective [Unknown]
  - Unevaluable event [Unknown]
  - Knee arthroplasty [Unknown]

NARRATIVE: CASE EVENT DATE: 20180607
